FAERS Safety Report 6139453-X (Version None)
Quarter: 2009Q2

REPORT INFORMATION
  Report Type: 
  Country: None (occurrence: None)
  Receive Date: 20090401
  Receipt Date: 20090330
  Transmission Date: 20091009
  Serious: Yes (Death, Hospitalization)
  Sender: FDA-Public Use
  Company Number: PHHY2009JP02489

PATIENT
  Age: 48 Year
  Sex: Male

DRUGS (8)
  1. NEORAL [Suspect]
     Indication: UNRELATED DONOR BONE MARROW TRANSPLANTATION THERAPY
     Dosage: 250 MG DAILY
     Route: 048
     Dates: start: 20080831, end: 20080930
  2. NEORAL [Suspect]
     Indication: PROPHYLAXIS AGAINST GRAFT VERSUS HOST DISEASE
  3. MICAFUNGIN SODIUM [Suspect]
     Indication: PROPHYLAXIS
     Dosage: 50 MG DAILY
  4. MICAFUNGIN SODIUM [Suspect]
     Indication: INFECTION PROPHYLAXIS
  5. METHOTREXATE [Concomitant]
     Indication: UNRELATED DONOR BONE MARROW TRANSPLANTATION THERAPY
  6. METHOTREXATE [Concomitant]
     Indication: PROPHYLAXIS AGAINST GRAFT VERSUS HOST DISEASE
  7. CYCLOPHOSPHAMIDE [Concomitant]
     Indication: UNRELATED DONOR BONE MARROW TRANSPLANTATION THERAPY
  8. IRRADIATION [Concomitant]

REACTIONS (2)
  - CANDIDA SEPSIS [None]
  - PYREXIA [None]
